FAERS Safety Report 9542204 (Version 6)
Quarter: 2014Q1

REPORT INFORMATION
  Report Type: Report from Study
  Country: CO (occurrence: CO)
  Receive Date: 20130923
  Receipt Date: 20140204
  Transmission Date: 20141002
  Serious: Yes (Death, Life-Threatening, Hospitalization)
  Sender: FDA-Public Use
  Company Number: CO-ROCHE-1279553

PATIENT
  Age: 71 Year
  Sex: Male
  Weight: 47 kg

DRUGS (5)
  1. LUCENTIS [Suspect]
     Indication: MACULAR DEGENERATION
     Route: 050
  2. LUCENTIS [Suspect]
     Indication: DIABETIC RETINAL OEDEMA
     Route: 050
  3. LOSARTAN [Concomitant]
     Route: 048
  4. FOLIC ACID [Concomitant]
     Route: 048
  5. FERROUS SULFATE [Concomitant]
     Route: 048

REACTIONS (5)
  - Diabetic complication [Fatal]
  - Cerebrovascular accident [Recovered/Resolved]
  - Limb injury [Unknown]
  - Diabetes mellitus [Not Recovered/Not Resolved]
  - Diabetic foot [Not Recovered/Not Resolved]
